FAERS Safety Report 14267865 (Version 1)
Quarter: 2017Q4

REPORT INFORMATION
  Report Type: Spontaneous
  Country: NL (occurrence: NL)
  Receive Date: 20171211
  Receipt Date: 20171211
  Transmission Date: 20180321
  Serious: Yes (Hospitalization)
  Sender: FDA-Public Use
  Company Number: PHHY2017NL181073

PATIENT
  Sex: Female

DRUGS (1)
  1. TOBRADEX [Suspect]
     Active Substance: DEXAMETHASONE\TOBRAMYCIN
     Indication: PERIORBITAL CELLULITIS
     Dosage: 3 GTT, QD FOR 5 DAYS AND THEN DECREASING
     Route: 047

REACTIONS (2)
  - Pyrexia [Unknown]
  - Brain abscess [Unknown]
